FAERS Safety Report 8799245 (Version 1)
Quarter: 2012Q4

REPORT INFORMATION
  Report Type: 
  Country: GB (occurrence: GB)
  Receive Date: 20120920
  Receipt Date: 20120920
  Transmission Date: 20130627
  Serious: Yes (Other)
  Sender: FDA-Public Use
  Company Number: GB-SANTEN INC.-INC-12-000264

PATIENT
  Age: 82 Year
  Sex: Female

DRUGS (4)
  1. TIMOLOL MALEATE [Suspect]
     Route: 065
  2. DEXAMETHASONE [Suspect]
  3. LOTEMAX [Suspect]
     Indication: FUNGAL INFECTION
     Route: 061
     Dates: start: 201006
  4. PREDNISOLONE [Suspect]

REACTIONS (1)
  - Diabetes mellitus [Unknown]
